FAERS Safety Report 8276621 (Version 5)
Quarter: 2013Q2

REPORT INFORMATION
  Report Type: Spontaneous
  Country: FR (occurrence: FR)
  Receive Date: 20111206
  Receipt Date: 20130414
  Transmission Date: 20140414
  Serious: Yes (Hospitalization)
  Sender: FDA-Public Use
  Company Number: FR-US-EMD SERONO, INC.-7099154

PATIENT
  Age: 37 Year
  Sex: Male

DRUGS (5)
  1. REBIF [Suspect]
     Indication: RELAPSING-REMITTING MULTIPLE SCLEROSIS
     Route: 058
     Dates: end: 201105
  2. AVONEX [Suspect]
     Indication: RELAPSING-REMITTING MULTIPLE SCLEROSIS
     Route: 030
     Dates: start: 200109, end: 200807
  3. SEROPLEX [Concomitant]
     Indication: DEPRESSION
     Dates: start: 200911
  4. SEROPLEX [Concomitant]
     Indication: SLEEP DISORDER
  5. RIVOTRIL [Concomitant]
     Indication: PRODUCT USED FOR UNKNOWN INDICATION

REACTIONS (5)
  - Vasculitis [Unknown]
  - Muscle injury [Unknown]
  - Insomnia [Unknown]
  - Asthenia [Unknown]
  - Injection site reaction [Unknown]
